FAERS Safety Report 10085703 (Version 2)
Quarter: 2014Q2

REPORT INFORMATION
  Report Type: Report from Study
  Country: CA (occurrence: CA)
  Receive Date: 20140418
  Receipt Date: 20140505
  Transmission Date: 20141212
  Serious: Yes (Death, Hospitalization, Other)
  Sender: FDA-Public Use
  Company Number: CA-UCBSA-118051

PATIENT
  Age: 66 Year
  Sex: Male
  Weight: 39 kg

DRUGS (9)
  1. CIMZIA [Suspect]
     Indication: RHEUMATOID ARTHRITIS
     Route: 058
     Dates: start: 20100908
  2. METHOTREXATE [Concomitant]
     Indication: RHEUMATOID ARTHRITIS
     Route: 048
     Dates: start: 200907
  3. VITAMIN B6 [Concomitant]
     Route: 048
  4. DILANTIN [Concomitant]
     Route: 048
  5. GRAVOL [Concomitant]
     Route: 048
  6. RANITIDINE [Concomitant]
     Route: 048
  7. WARFARIN [Concomitant]
     Dosage: ON HOLD IN HOSPITAL
     Route: 048
  8. LORAZEPAM [Concomitant]
     Route: 048
  9. SPIRIVA [Concomitant]
     Indication: ASTHMA
     Dosage: ROUTE:INHAILATION
     Dates: start: 201210

REACTIONS (3)
  - Death [Fatal]
  - Pulmonary embolism [Not Recovered/Not Resolved]
  - Myocardial infarction [Unknown]
